FAERS Safety Report 21666346 (Version 2)
Quarter: 2022Q4

REPORT INFORMATION
  Report Type: Spontaneous
  Country: US (occurrence: None)
  Receive Date: 20221201
  Receipt Date: 20221205
  Transmission Date: 20230113
  Serious: Yes (Death)
  Sender: FDA-Public Use
  Company Number: US-ROCHE-3228864

PATIENT
  Age: 67 Year
  Sex: Female

DRUGS (1)
  1. ALECENSA [Suspect]
     Active Substance: ALECTINIB HYDROCHLORIDE
     Indication: Product used for unknown indication
     Route: 048
     Dates: start: 20210920

REACTIONS (1)
  - Death [Fatal]
